FAERS Safety Report 13615903 (Version 1)
Quarter: 2017Q2

REPORT INFORMATION
  Report Type: Spontaneous
  Country: CN (occurrence: CN)
  Receive Date: 20170606
  Receipt Date: 20170606
  Transmission Date: 20170830
  Serious: Yes (Disabling)
  Sender: FDA-Public Use
  Company Number: CN-PFIZER INC-2017246037

PATIENT
  Age: 82 Year
  Sex: Male
  Weight: 52.5 kg

DRUGS (2)
  1. CEFATHIAMIDINE [Concomitant]
     Active Substance: CEFTRIAXONE SODIUM
     Indication: INFECTION
     Dosage: 2 G, 3X/DAY
     Route: 041
     Dates: start: 20170328, end: 20170402
  2. CELEBREX [Suspect]
     Active Substance: CELECOXIB
     Indication: ARTHRALGIA
     Dosage: 1 DF, 3X/DAY
     Route: 048
     Dates: start: 20170327, end: 20170407

REACTIONS (1)
  - Renal impairment [Not Recovered/Not Resolved]

NARRATIVE: CASE EVENT DATE: 20170407
